FAERS Safety Report 9845021 (Version 1)
Quarter: 2014Q1

REPORT INFORMATION
  Report Type: Spontaneous
  Country: US (occurrence: None)
  Receive Date: 20140122
  Receipt Date: 20140122
  Transmission Date: 20141002
  Serious: Yes (Death)
  Sender: FDA-Public Use
  Company Number: 2014AP000347

PATIENT
  Age: 32 Year
  Sex: Female

DRUGS (7)
  1. TRAZODONE HYDROCHLORIDE TABLETS [Suspect]
     Route: 048
  2. METHADONE [Suspect]
     Route: 048
  3. CLONAZEPAM TABLETS, USP [Suspect]
  4. MEPROBAMATE [Suspect]
     Route: 048
  5. CYCLOBENZAPRINE [Suspect]
     Route: 048
  6. OXCARBAZEPINE TABLETS, 300 MG [Suspect]
     Route: 048
  7. OXYCODONE [Suspect]
     Route: 048

REACTIONS (1)
  - Drug abuse [None]
